FAERS Safety Report 13546913 (Version 1)
Quarter: 2017Q2

REPORT INFORMATION
  Report Type: Spontaneous
  Country: US (occurrence: US)
  Receive Date: 20170515
  Receipt Date: 20170515
  Transmission Date: 20170830
  Serious: Yes (Hospitalization)
  Sender: FDA-Public Use
  Company Number: US-ASTRAZENECA-2017SE50139

PATIENT
  Age: 25142 Day
  Sex: Male
  Weight: 83.5 kg

DRUGS (9)
  1. DIOVAN HCT [Concomitant]
     Active Substance: HYDROCHLOROTHIAZIDE\VALSARTAN
     Indication: BLOOD PRESSURE ABNORMAL
     Route: 048
     Dates: start: 2010
  2. BRILINTA [Suspect]
     Active Substance: TICAGRELOR
     Dosage: DAILY
     Route: 048
     Dates: start: 20160509
  3. GLICLAZIDE [Concomitant]
     Active Substance: GLICLAZIDE
     Indication: DIABETES MELLITUS
     Route: 048
     Dates: start: 2002
  4. ALLERGY PILL [Concomitant]
     Active Substance: UNSPECIFIED INGREDIENT
     Route: 065
  5. JARDIANCE [Concomitant]
     Active Substance: EMPAGLIFLOZIN
     Indication: DIABETES MELLITUS
     Route: 048
  6. AMBIEN [Concomitant]
     Active Substance: ZOLPIDEM TARTRATE
     Indication: SLEEP DISORDER
     Route: 048
     Dates: start: 2013
  7. JANUMET XR [Concomitant]
     Active Substance: METFORMIN HYDROCHLORIDE\SITAGLIPTIN PHOSPHATE
     Indication: DIABETES MELLITUS
     Dosage: TWO TIMES A DAY
     Route: 048
  8. ASPIRIN. [Concomitant]
     Active Substance: ASPIRIN
     Indication: STENT PLACEMENT
     Route: 048
     Dates: start: 2002
  9. TOPROL XL [Suspect]
     Active Substance: METOPROLOL SUCCINATE
     Indication: BLOOD PRESSURE ABNORMAL
     Route: 048
     Dates: start: 2010

REACTIONS (8)
  - Obstruction [Unknown]
  - Weight decreased [Unknown]
  - Off label use [Unknown]
  - Fatigue [Unknown]
  - Insomnia [Unknown]
  - Diabetes mellitus [Unknown]
  - Poor peripheral circulation [Unknown]
  - Extremity necrosis [Unknown]

NARRATIVE: CASE EVENT DATE: 20170509
